FAERS Safety Report 4993867-X (Version None)
Quarter: 2006Q2

REPORT INFORMATION
  Report Type: 
  Country: None (occurrence: None)
  Receive Date: 20060503
  Receipt Date: 20060426
  Transmission Date: 20061013
  Serious: Yes (Death, Hospitalization)
  Sender: FDA-Public Use
  Company Number: 2006VX000067

PATIENT
  Age: 48 Year
  Sex: Male
  Weight: 93.6 kg

DRUGS (3)
  1. INTERFERON ALFACON-1 (INTERFERON ALFACON-1) (12 MIU) [Suspect]
     Indication: HEPATITIS C
     Dosage: SEE IMAGE
     Route: 058
     Dates: start: 20040303, end: 20040317
  2. INTERFERON ALFACON-1 (INTERFERON ALFACON-1) (12 MIU) [Suspect]
     Indication: HEPATITIS C
     Dosage: SEE IMAGE
     Route: 058
     Dates: start: 20040319, end: 20040819
  3. RIBAVIRIN [Suspect]
     Indication: HEPATITIS C
     Dosage: 400 MG; BID; PO
     Route: 048
     Dates: start: 20040303, end: 20040816

REACTIONS (27)
  - ALANINE AMINOTRANSFERASE INCREASED [None]
  - ARTHRALGIA [None]
  - ASPARTATE AMINOTRANSFERASE INCREASED [None]
  - ATRIAL TACHYCARDIA [None]
  - CHILLS [None]
  - CONDITION AGGRAVATED [None]
  - CONTUSION [None]
  - DECREASED APPETITE [None]
  - DYSPNOEA [None]
  - ECZEMA [None]
  - FACE INJURY [None]
  - GAMMA-GLUTAMYLTRANSFERASE INCREASED [None]
  - GLUCOSE URINE PRESENT [None]
  - HAEMATOCRIT DECREASED [None]
  - HAEMOGLOBIN DECREASED [None]
  - HEADACHE [None]
  - LUNG NEOPLASM MALIGNANT [None]
  - MYALGIA [None]
  - NECK PAIN [None]
  - NEUTROPHIL COUNT DECREASED [None]
  - PAIN OF SKIN [None]
  - PALPITATIONS [None]
  - PLATELET COUNT DECREASED [None]
  - PRURITUS GENERALISED [None]
  - PYREXIA [None]
  - RED BLOOD CELL COUNT DECREASED [None]
  - WHITE BLOOD CELL COUNT DECREASED [None]
